FAERS Safety Report 9912617 (Version 1)
Quarter: 2014Q1

REPORT INFORMATION
  Report Type: Spontaneous
  Country: US (occurrence: None)
  Receive Date: 20140218
  Receipt Date: 20140218
  Transmission Date: 20141002
  Serious: Yes (Hospitalization)
  Sender: FDA-Public Use
  Company Number: None

PATIENT
  Age: 67 Year
  Sex: Female
  Weight: 50.1 kg

DRUGS (2)
  1. CYTARABINE [Suspect]
  2. IDARUBICIN [Suspect]

REACTIONS (6)
  - Haemoptysis [None]
  - Hypotension [None]
  - Respiratory failure [None]
  - Pneumonia [None]
  - Pulmonary haemorrhage [None]
  - Cardiac arrest [None]
